FAERS Safety Report 4520660-4 (Version None)
Quarter: 2004Q4

REPORT INFORMATION
  Report Type: 
  Country: None (occurrence: None)
  Receive Date: 20041207
  Receipt Date: 20041203
  Transmission Date: 20050328
  Serious: Yes (Disabling)
  Sender: FDA-Public Use
  Company Number: US-MERCK-0412USA00495

PATIENT
  Age: 72 Year
  Sex: Male

DRUGS (5)
  1. ZETIA [Suspect]
     Route: 048
     Dates: start: 20040401
  2. BEXTRA [Concomitant]
     Route: 065
  3. MONOPRIL [Concomitant]
     Route: 065
  4. FLEXERIL [Concomitant]
     Route: 048
  5. FENTANYL ORALET [Concomitant]
     Route: 065

REACTIONS (1)
  - NEUROPATHY PERIPHERAL [None]
